FAERS Safety Report 8034641-X (Version None)
Quarter: 2012Q1

REPORT INFORMATION
  Report Type: 
  Country: None (occurrence: None)
  Receive Date: 20120110
  Receipt Date: 20120105
  Transmission Date: 20120608
  Serious: Yes (Hospitalization)
  Sender: FDA-Public Use
  Company Number: US-MERCK-1201USA00626

PATIENT
  Age: 53 Year
  Sex: Male

DRUGS (3)
  1. URSODIOL [Concomitant]
     Route: 065
  2. HYZAAR [Suspect]
     Indication: HYPERTENSION
     Route: 065
     Dates: start: 20101001, end: 20111201
  3. OMEPRAZOLE [Concomitant]
     Route: 065

REACTIONS (1)
  - OBESITY [None]
